FAERS Safety Report 5557101-4 (Version None)
Quarter: 2007Q4

REPORT INFORMATION
  Report Type: 
  Country: None (occurrence: None)
  Receive Date: 20071214
  Receipt Date: 20071108
  Transmission Date: 20080405
  Serious: No
  Sender: FDA-Public Use
  Company Number: FR-AVENTIS-200713636FR

PATIENT
  Age: 31 Year
  Sex: Male

DRUGS (1)
  1. ARAVA [Suspect]
     Indication: DRUG USE FOR UNKNOWN INDICATION
     Route: 048
     Dates: end: 20070601

REACTIONS (2)
  - NO ADVERSE REACTION [None]
  - TRANSMISSION OF DRUG VIA SEMEN [None]
